FAERS Safety Report 8513742-3 (Version None)
Quarter: 2012Q3

REPORT INFORMATION
  Report Type: 
  Country: None (occurrence: None)
  Receive Date: 20120705
  Receipt Date: 20120621
  Transmission Date: 20120928
  Serious: Yes (Hospitalization, Other)
  Sender: FDA-Public Use
  Company Number: 2012MA006534

PATIENT
  Age: 31 Year
  Sex: Male

DRUGS (2)
  1. RAMIPRIL [Suspect]
     Indication: HYPERTENSION
     Dosage: 5 MG, QD, PO
     Route: 048
     Dates: start: 20120224, end: 20120312
  2. ATRIPLA [Suspect]
     Indication: HIV INFECTION
     Dosage: ; QD; PO
     Route: 048
     Dates: start: 20111201, end: 20120320

REACTIONS (7)
  - HAEMATURIA [None]
  - LETHARGY [None]
  - CHEST PAIN [None]
  - PAROXYSMAL NOCTURNAL HAEMOGLOBINURIA [None]
  - CARDIAC FAILURE [None]
  - APLASIA PURE RED CELL [None]
  - DYSPNOEA [None]
